FAERS Safety Report 15985950 (Version 1)
Quarter: 2019Q1

REPORT INFORMATION
  Report Type: Report from Study
  Country: US (occurrence: US)
  Receive Date: 20190220
  Receipt Date: 20190220
  Transmission Date: 20190418
  Serious: Yes (Other)
  Sender: FDA-Public Use
  Company Number: US-BAYER-2019-008110

PATIENT
  Age: 72 Year
  Sex: Male
  Weight: 87.08 kg

DRUGS (16)
  1. PREDNISONE. [Concomitant]
     Active Substance: PREDNISONE
     Dosage: 60MG DAILY TAKE WITH FOOD TO PREVENT STOMACH UPSET
     Route: 048
     Dates: start: 20190108
  2. ASPIRIN [ACETYLSALICYLIC ACID] [Concomitant]
     Active Substance: ASPIRIN
     Dosage: UNK
     Route: 048
     Dates: start: 20180215
  3. CYMBALTA [Concomitant]
     Active Substance: DULOXETINE HYDROCHLORIDE
     Dosage: UNK
     Route: 048
     Dates: start: 20180619
  4. OMEPRAZOLE. [Concomitant]
     Active Substance: OMEPRAZOLE
     Dosage: UNK
     Route: 048
     Dates: start: 20180215
  5. XOFIGO [Suspect]
     Active Substance: RADIUM RA-223 DICHLORIDE
     Indication: PROSTATE CANCER STAGE IV
     Dosage: 131.70000 ?CI
     Dates: start: 20180920, end: 20180920
  6. ONDANSETRON [Concomitant]
     Active Substance: ONDANSETRON
     Dosage: 8 MG, TID
     Route: 048
     Dates: start: 20190103
  7. TAMSULOSIN [Concomitant]
     Active Substance: TAMSULOSIN
     Dosage: 24 HOURS
     Route: 048
     Dates: start: 20180215
  8. TRELSTAR [Concomitant]
     Active Substance: TRIPTORELIN PAMOATE
     Dosage: UNK
     Dates: start: 20180215
  9. MULTIVITAMINS [VITAMINS NOS] [Concomitant]
     Active Substance: VITAMINS
     Dosage: UNK
     Route: 048
     Dates: start: 20180215
  10. VITAMIN D [Concomitant]
     Active Substance: CHOLECALCIFEROL
     Dosage: UNK
     Route: 048
     Dates: start: 20180125
  11. DILTIAZEM. [Concomitant]
     Active Substance: DILTIAZEM
     Dosage: 24 HOURS
     Route: 048
     Dates: start: 20161122
  12. PREDNISONE. [Concomitant]
     Active Substance: PREDNISONE
     Dosage: UNK
     Route: 048
  13. XOFIGO [Suspect]
     Active Substance: RADIUM RA-223 DICHLORIDE
     Indication: PROSTATE CANCER STAGE IV
     Dosage: UNK
     Dates: start: 20181213, end: 20181213
  14. OMEGA-3 FATTY ACIDS [Concomitant]
     Active Substance: OMEGA-3 FATTY ACIDS
     Dosage: UNK
     Route: 048
     Dates: start: 20180215
  15. CRESTOR [Concomitant]
     Active Substance: ROSUVASTATIN CALCIUM
     Dosage: UNK
     Route: 048
     Dates: start: 20180125
  16. TOCOPHEROL [Concomitant]
     Active Substance: TOCOPHEROL
     Dosage: UNK
     Route: 048
     Dates: start: 20180215

REACTIONS (18)
  - Skin lesion [None]
  - Soft tissue mass [None]
  - Lethargy [None]
  - General physical health deterioration [None]
  - Asthenia [None]
  - Hepatic function abnormal [None]
  - Metastases to bone [None]
  - Metastases to skin [None]
  - Jaundice [None]
  - Lymphadenopathy mediastinal [None]
  - Acute kidney injury [None]
  - Metastases to heart [None]
  - Unevaluable event [None]
  - Decreased appetite [None]
  - Renal impairment [None]
  - Weight decreased [None]
  - Fatigue [None]
  - Hilar lymphadenopathy [None]
